FAERS Safety Report 7007299-6 (Version None)
Quarter: 2010Q3

REPORT INFORMATION
  Report Type: 
  Country: None (occurrence: None)
  Receive Date: 20100922
  Receipt Date: 20100913
  Transmission Date: 20110219
  Serious: Yes (Other)
  Sender: FDA-Public Use
  Company Number: PHHY2010US60935

PATIENT
  Sex: Female

DRUGS (2)
  1. RECLAST [Suspect]
  2. INFLUENZA VIRUS VACC SEASONAL INN (NVD) [Suspect]
     Indication: IMMUNISATION

REACTIONS (1)
  - NEURALGIC AMYOTROPHY [None]
